FAERS Safety Report 5138733-4 (Version None)
Quarter: 2006Q4

REPORT INFORMATION
  Report Type: 
  Country: None (occurrence: None)
  Receive Date: 20061026
  Receipt Date: 20061026
  Transmission Date: 20070319
  Serious: Yes (Hospitalization)
  Sender: FDA-Public Use
  Company Number: None

PATIENT
  Age: 45 Year
  Sex: Female

DRUGS (11)
  1. LITHIUM CARBONATE [Suspect]
     Indication: DEPRESSION SUICIDAL
     Dosage: 600 MG   BID   PO
     Route: 048
     Dates: start: 20060919, end: 20060926
  2. ALLEGRA [Concomitant]
  3. ADVAIR DISKUS 100/50 [Concomitant]
  4. HYDROCHLOROTHIAZIDE [Concomitant]
  5. HYDROCORTISONE [Concomitant]
  6. LISINOPRIL [Concomitant]
  7. METFORMIN HCL [Concomitant]
  8. NICOTINE [Concomitant]
  9. PAXIL [Concomitant]
  10. PREDNISONE TAB [Concomitant]
  11. ZANTAC [Concomitant]

REACTIONS (5)
  - BLOOD SODIUM DECREASED [None]
  - CONFUSIONAL STATE [None]
  - DEPRESSED LEVEL OF CONSCIOUSNESS [None]
  - DRUG TOXICITY [None]
  - LETHARGY [None]
